FAERS Safety Report 23080438 (Version 2)
Quarter: 2023Q4

REPORT INFORMATION
  Report Type: Spontaneous
  Country: US (occurrence: US)
  Receive Date: 20231018
  Receipt Date: 20231103
  Transmission Date: 20240110
  Serious: Yes (Other)
  Sender: FDA-Public Use
  Company Number: US-PFIZER INC-PV202200122810

PATIENT
  Age: 72 Year
  Sex: Female
  Weight: 58.957 kg

DRUGS (2)
  1. PREMARIN [Suspect]
     Active Substance: ESTROGENS, CONJUGATED
     Indication: Vulvovaginal dryness
     Dosage: APPLICATOR FULL THREE TIMES A WEEK
     Route: 067
  2. AMLODIPINE [Concomitant]
     Active Substance: AMLODIPINE BESYLATE
     Indication: Hypertension
     Dosage: 5 MG, 1X/DAY
     Route: 048

REACTIONS (7)
  - Sports injury [Unknown]
  - Ligament rupture [Unknown]
  - Ligament sprain [Unknown]
  - Meniscus injury [Unknown]
  - Joint injury [Recovering/Resolving]
  - Fall [Unknown]
  - Off label use [Unknown]

NARRATIVE: CASE EVENT DATE: 20230425
